FAERS Safety Report 8493418-1 (Version None)
Quarter: 2012Q2

REPORT INFORMATION
  Report Type: 
  Country: None (occurrence: None)
  Receive Date: 20120402
  Receipt Date: 20090313
  Transmission Date: 20120825
  Serious: Yes (Other)
  Sender: FDA-Public Use
  Company Number: PHEH2009US01972

PATIENT
  Age: 68 Year
  Sex: Male
  Weight: 102.9 kg

DRUGS (6)
  1. EXFORGE [Suspect]
     Indication: HYPERTENSION
     Dosage: 10/320, UNK
     Dates: start: 20080301, end: 20081101
  2. LASIX [Concomitant]
  3. COREG [Concomitant]
  4. LISINOPRIL [Suspect]
     Indication: HYPERTENSION
     Dates: start: 20081101
  5. PROSCAR [Concomitant]
  6. MIRAPEX [Concomitant]

REACTIONS (1)
  - HYPERKALAEMIA [None]
